FAERS Safety Report 4788443-8 (Version None)
Quarter: 2005Q4

REPORT INFORMATION
  Report Type: 
  Country: None (occurrence: None)
  Receive Date: 20051005
  Receipt Date: 20050923
  Transmission Date: 20060501
  Serious: Yes (Death)
  Sender: FDA-Public Use
  Company Number: FR-BRISTOL-MYERS SQUIBB COMPANY-13121785

PATIENT
  Age: 46 Year
  Sex: Female

DRUGS (3)
  1. ABILIFY [Suspect]
     Route: 048
  2. TERCIAN [Concomitant]
  3. RISPERDAL [Concomitant]

REACTIONS (4)
  - ANXIETY [None]
  - INHALATION THERAPY [None]
  - INTESTINAL OBSTRUCTION [None]
  - VOMITING [None]
